FAERS Safety Report 5958125-5 (Version None)
Quarter: 2008Q4

REPORT INFORMATION
  Report Type: 
  Country: None (occurrence: None)
  Receive Date: 20081117
  Receipt Date: 20081117
  Transmission Date: 20090506
  Serious: Yes (Hospitalization)
  Sender: FDA-Public Use
  Company Number: None

PATIENT
  Age: 43 Year
  Sex: Male
  Weight: 113.6 kg

DRUGS (1)
  1. CEFTIN [Suspect]
     Indication: CELLULITIS
     Dosage: 250MG TWO TIMES DAILY PO, TWO DOSES
     Route: 048
     Dates: start: 20080804, end: 20080805

REACTIONS (4)
  - ACUTE RESPIRATORY FAILURE [None]
  - ANGIOEDEMA [None]
  - RHINITIS [None]
  - STAPHYLOCOCCAL INFECTION [None]
